FAERS Safety Report 6919472-3 (Version None)
Quarter: 2010Q3

REPORT INFORMATION
  Report Type: 
  Country: None (occurrence: None)
  Receive Date: 20100811
  Receipt Date: 20100804
  Transmission Date: 20110219
  Serious: Yes (Other)
  Sender: FDA-Public Use
  Company Number: B0669344A

PATIENT
  Sex: Female

DRUGS (1)
  1. FLIXOTIDE [Suspect]
     Indication: PRODUCT USED FOR UNKNOWN INDICATION
     Route: 065
     Dates: start: 19990101

REACTIONS (1)
  - DIABETES MELLITUS [None]
